FAERS Safety Report 10014487 (Version 2)
Quarter: 2014Q2

REPORT INFORMATION
  Report Type: Spontaneous
  Country: US (occurrence: US)
  Receive Date: 20140317
  Receipt Date: 20140409
  Transmission Date: 20141212
  Serious: No
  Sender: FDA-Public Use
  Company Number: US-009507513-1403USA000975

PATIENT
  Sex: Female

DRUGS (2)
  1. TIMOPTIC [Suspect]
     Dosage: USED IN THE LEFT EYE
     Route: 047
  2. COSOPT PF [Suspect]
     Indication: AGE-RELATED MACULAR DEGENERATION
     Dosage: 1 GTT, DAILY DOSE: ONE DROP IN RIGHT EYE TWICE A DAY
     Route: 047

REACTIONS (2)
  - Eye irritation [Unknown]
  - Product container issue [Unknown]
